FAERS Safety Report 5915739-6 (Version None)
Quarter: 2008Q4

REPORT INFORMATION
  Report Type: 
  Country: None (occurrence: None)
  Receive Date: 20081010
  Receipt Date: 20081006
  Transmission Date: 20090506
  Serious: Yes (Death)
  Sender: FDA-Public Use
  Company Number: IN-B.I. PHARMACEUTICALS,INC./RIDGEFIELD-2008-BP-15417SG

PATIENT
  Age: 75 Year
  Sex: Male

DRUGS (1)
  1. AGGRENOX [Suspect]
     Indication: ISCHAEMIC STROKE
     Route: 048
     Dates: start: 20080301

REACTIONS (1)
  - DEATH [None]
